FAERS Safety Report 5061110-1 (Version None)
Quarter: 2006Q3

REPORT INFORMATION
  Report Type: 
  Country: None (occurrence: None)
  Receive Date: 20060725
  Receipt Date: 20060322
  Transmission Date: 20061208
  Serious: Yes (Death, Hospitalization, Other)
  Sender: FDA-Public Use
  Company Number: US-AVENTIS-200612943US

PATIENT
  Sex: Male
  Weight: 72.72 kg

DRUGS (14)
  1. LANTUS [Suspect]
     Indication: DIABETES MELLITUS NON-INSULIN-DEPENDENT
     Dosage: DOSE UNIT: UNITS
     Dates: start: 20050101
  2. LANTUS [Suspect]
     Dosage: DOSE UNIT: UNITS
  3. OPTICLIK (INSULIN INJECTION PEN) [Suspect]
  4. NOVOLOG [Concomitant]
     Dosage: DOSE: UNK
  5. METFORMIN [Concomitant]
     Dates: start: 20060104
  6. GLYBURIDE [Concomitant]
     Dates: start: 20051104
  7. TOPROL-XL [Concomitant]
  8. FERROUS SULFATE TAB [Concomitant]
     Dosage: DOSE: UNK
  9. ASPIRIN [Concomitant]
  10. MULTIVITAMIN [Concomitant]
     Dosage: DOSE: UNK
  11. LASIX [Concomitant]
  12. LOPRESSOR [Concomitant]
     Dosage: DOSE: 50MG-1/2 TAB TWICE DAILY
     Dates: start: 20050705, end: 20060323
  13. PLAVIX [Concomitant]
     Dates: start: 20050705, end: 20060323
  14. ASPIRIN [Concomitant]
     Dates: start: 20050705, end: 20060323

REACTIONS (26)
  - AORTIC VALVE SCLEROSIS [None]
  - BLOOD GLUCOSE DECREASED [None]
  - BLOOD GLUCOSE INCREASED [None]
  - CARDIAC ARREST [None]
  - CORONARY ARTERY DISEASE [None]
  - DIABETIC NEUROPATHY [None]
  - DYSPNOEA [None]
  - DYSPNOEA PAROXYSMAL NOCTURNAL [None]
  - FLUID RETENTION [None]
  - GAIT DISTURBANCE [None]
  - HYPERLIPIDAEMIA [None]
  - HYPOGLYCAEMIA [None]
  - INAPPROPRIATE SCHEDULE OF DRUG ADMINISTRATION [None]
  - METABOLIC SYNDROME [None]
  - MITRAL VALVE SCLEROSIS [None]
  - OEDEMA PERIPHERAL [None]
  - PAIN IN EXTREMITY [None]
  - PERICARDIAL EFFUSION [None]
  - PERICARDITIS [None]
  - PERICARDITIS CONSTRICTIVE [None]
  - PERIPHERAL VASCULAR DISORDER [None]
  - POSTPERICARDIOTOMY SYNDROME [None]
  - PULSE ABNORMAL [None]
  - SKIN ULCER [None]
  - VENTRICULAR FIBRILLATION [None]
  - WEIGHT INCREASED [None]
